FAERS Safety Report 26086602 (Version 2)
Quarter: 2025Q4

REPORT INFORMATION
  Report Type: Spontaneous
  Country: KZ (occurrence: KZ)
  Receive Date: 20251125
  Receipt Date: 20251127
  Transmission Date: 20260118
  Serious: Yes (Other)
  Sender: GILEAD
  Company Number: KZ-GILEAD-2025-0735119

PATIENT
  Age: 4 Decade
  Sex: Male

DRUGS (1)
  1. COMPLERA [Suspect]
     Active Substance: EMTRICITABINE\RILPIVIRINE HYDROCHLORIDE\TENOFOVIR DISOPROXIL FUMARATE
     Indication: HIV infection
     Dosage: COMPLERA GAP 200/25/300 MG
     Route: 048
     Dates: start: 20210615, end: 2025

REACTIONS (12)
  - Therapeutic product effect decreased [Unknown]
  - Anxiety [Unknown]
  - Disorientation [Unknown]
  - Asthenia [Unknown]
  - Decreased appetite [Unknown]
  - Affective disorder [Unknown]
  - Product counterfeit [Unknown]
  - Product quality issue [Unknown]
  - Product lot number issue [Unknown]
  - Product colour issue [Unknown]
  - Product shape issue [Unknown]
  - Product physical consistency issue [Unknown]
